FAERS Safety Report 6676861-2 (Version None)
Quarter: 2010Q2

REPORT INFORMATION
  Report Type: 
  Country: None (occurrence: None)
  Receive Date: 20100409
  Receipt Date: 20100409
  Transmission Date: 20101027
  Serious: No
  Sender: FDA-Public Use
  Company Number: None

PATIENT
  Sex: Female
  Weight: 68.0396 kg

DRUGS (1)
  1. CLINDAMYCIN [Suspect]
     Indication: TOOTH INFECTION
     Dosage: 1 CAPSULE 4X DAILY FOR 7 DAYS
     Dates: start: 20100109, end: 20100115

REACTIONS (3)
  - ANORECTAL DISORDER [None]
  - PRURITUS [None]
  - RASH GENERALISED [None]
